FAERS Safety Report 16202109 (Version 1)
Quarter: 2019Q2

REPORT INFORMATION
  Report Type: Spontaneous
  Country: US (occurrence: US)
  Receive Date: 20190415
  Receipt Date: 20190415
  Transmission Date: 20190711
  Serious: Yes (Hospitalization)
  Sender: FDA-Public Use
  Company Number: None

PATIENT
  Age: 66 Year
  Sex: Male

DRUGS (13)
  1. AMPICILLIN 2G Q4H [Concomitant]
  2. PREDNISONE. [Concomitant]
     Active Substance: PREDNISONE
  3. AMLODIPINE [Concomitant]
     Active Substance: AMLODIPINE BESYLATE
  4. EPCLUSA [Suspect]
     Active Substance: SOFOSBUVIR\VELPATASVIR
     Route: 048
  5. TAMSULOSIN [Concomitant]
     Active Substance: TAMSULOSIN
  6. FOLIC ACID. [Concomitant]
     Active Substance: FOLIC ACID
  7. FONDAPARINUX 2.5MG [Concomitant]
  8. LACTULOSE. [Concomitant]
     Active Substance: LACTULOSE
  9. PHYTONADIONE. [Concomitant]
     Active Substance: PHYTONADIONE
  10. RIBAVIRIN. [Suspect]
     Active Substance: RIBAVIRIN
     Route: 048
  11. INSULIN ASPART [Concomitant]
     Active Substance: INSULIN ASPART
  12. INSULIN GLARGINE [Concomitant]
     Active Substance: INSULIN GLARGINE
  13. MUPIROCIN. [Concomitant]
     Active Substance: MUPIROCIN

REACTIONS (7)
  - Encephalopathy [None]
  - Acute kidney injury [None]
  - Haemoglobin decreased [None]
  - Haptoglobin decreased [None]
  - Metabolic acidosis [None]
  - Azotaemia [None]
  - Packed red blood cell transfusion [None]

NARRATIVE: CASE EVENT DATE: 20181216
